FAERS Safety Report 4439895-4 (Version None)
Quarter: 2004Q3

REPORT INFORMATION
  Report Type: 
  Country: None (occurrence: None)
  Receive Date: 20040831
  Receipt Date: 20040818
  Transmission Date: 20050211
  Serious: Yes (Other)
  Sender: FDA-Public Use
  Company Number: 2004057092

PATIENT
  Age: 63 Year
  Sex: Male
  Weight: 136.0791 kg

DRUGS (4)
  1. CORTIZONE-10 ANTI-ITCH (HYDROCORTISONE) [Suspect]
     Indication: SKIN LACERATION
     Dosage: QUARTER SIZE, 2-3 TIMES
     Route: 061
  2. LISINOPRIL [Concomitant]
  3. RANITIDINE HYDROCHLORIDE [Concomitant]
  4. DIURETICS (DIURETICS) [Concomitant]

REACTIONS (8)
  - ACCIDENTAL EXPOSURE [None]
  - APPLICATION SITE DERMATITIS [None]
  - APPLICATION SITE ERYTHEMA [None]
  - APPLICATION SITE REACTION [None]
  - EYE SWELLING [None]
  - RASH GENERALISED [None]
  - SWELLING FACE [None]
  - VISUAL DISTURBANCE [None]
